FAERS Safety Report 25086706 (Version 1)
Quarter: 2025Q1

REPORT INFORMATION
  Report Type: Report from Study
  Country: US (occurrence: US)
  Receive Date: 20250318
  Receipt Date: 20250318
  Transmission Date: 20250409
  Serious: Yes (Other)
  Sender: TAKEDA
  Company Number: US-TAKEDA-2025TUS025708

PATIENT
  Sex: Male

DRUGS (21)
  1. IXAZOMIB [Suspect]
     Active Substance: IXAZOMIB
     Indication: Plasma cell myeloma
  2. LENALIDOMIDE [Suspect]
     Active Substance: LENALIDOMIDE
     Indication: Plasma cell myeloma
  3. TYLENOL [Concomitant]
     Active Substance: ACETAMINOPHEN
  4. BACTRIM DS [Concomitant]
     Active Substance: SULFAMETHOXAZOLE\TRIMETHOPRIM
  5. IBUPROFEN [Concomitant]
     Active Substance: IBUPROFEN
  6. SENNA [Concomitant]
     Active Substance: SENNOSIDES
  7. DICLOFENAC [Concomitant]
     Active Substance: DICLOFENAC
  8. BENADRYL [Concomitant]
     Active Substance: DIPHENHYDRAMINE HYDROCHLORIDE
  9. ELIQUIS [Concomitant]
     Active Substance: APIXABAN
  10. EPINEPHRINE [Concomitant]
     Active Substance: EPINEPHRINE
  11. FENTANYL [Concomitant]
     Active Substance: FENTANYL
  12. LANSOPRAZOLE [Concomitant]
     Active Substance: LANSOPRAZOLE
  13. LENALIDOMIDE [Concomitant]
     Active Substance: LENALIDOMIDE
  14. LINZESS [Concomitant]
     Active Substance: LINACLOTIDE
  15. METOPROLOL SUCCINATE [Concomitant]
     Active Substance: METOPROLOL SUCCINATE
  16. NALOXONE [Concomitant]
     Active Substance: NALOXONE
  17. OXYCODONE [Concomitant]
     Active Substance: OXYCODONE
  18. ROSUVASTATIN [Concomitant]
     Active Substance: ROSUVASTATIN
  19. TIZANIDINE [Concomitant]
     Active Substance: TIZANIDINE
  20. VALACYCLOVIR [Concomitant]
     Active Substance: VALACYCLOVIR HYDROCHLORIDE
  21. DEXAMETHASONE [Concomitant]
     Active Substance: DEXAMETHASONE

REACTIONS (1)
  - Haemoglobin decreased [Unknown]
